FAERS Safety Report 9833507 (Version 2)
Quarter: 2014Q1

REPORT INFORMATION
  Report Type: Spontaneous
  Country: JP (occurrence: JP)
  Receive Date: 20140122
  Receipt Date: 20140228
  Transmission Date: 20141002
  Serious: Yes (Other)
  Sender: FDA-Public Use
  Company Number: JP-009507513-1401JPN007957

PATIENT
  Age: 67 Year
  Sex: Female

DRUGS (1)
  1. GASTER D [Suspect]
     Dosage: 10 MG, QD
     Route: 048
     Dates: start: 201303, end: 201304

REACTIONS (1)
  - Drug-induced liver injury [Unknown]
